FAERS Safety Report 8924041 (Version 1)
Quarter: 2012Q4

REPORT INFORMATION
  Report Type: 
  Country: GB (occurrence: GB)
  Receive Date: 20121126
  Receipt Date: 20121126
  Transmission Date: 20130627
  Serious: Yes (Disabling)
  Sender: FDA-Public Use
  Company Number: PHHY2012GB105677

PATIENT
  Age: 20 Year

DRUGS (2)
  1. MIRTAZAPINE [Suspect]
     Dosage: UNK
     Route: 048
  2. ARIPIPRAZOLE [Suspect]
     Dosage: UNK
     Route: 048

REACTIONS (1)
  - Photopsia [Unknown]
